FAERS Safety Report 26076461 (Version 2)
Quarter: 2025Q4

REPORT INFORMATION
  Report Type: Spontaneous
  Country: DZ (occurrence: DZ)
  Receive Date: 20251121
  Receipt Date: 20251126
  Transmission Date: 20260118
  Serious: Yes (Death)
  Sender: PFIZER
  Company Number: DZ-PFIZER INC-PV202500136687

PATIENT

DRUGS (1)
  1. PALBOCICLIB [Suspect]
     Active Substance: PALBOCICLIB
     Dosage: UNK

REACTIONS (2)
  - Interstitial lung disease [Fatal]
  - COVID-19 [Fatal]
